FAERS Safety Report 16316119 (Version 2)
Quarter: 2019Q4

REPORT INFORMATION
  Report Type: Report from Study
  Country: US (occurrence: US)
  Receive Date: 20190515
  Receipt Date: 20191015
  Transmission Date: 20200122
  Serious: No
  Sender: FDA-Public Use
  Company Number: US-SA-2019SA127270

PATIENT
  Age: 58 Year
  Sex: Male

DRUGS (9)
  1. VITAMIN D3 [Concomitant]
     Active Substance: CHOLECALCIFEROL
  2. PREDNISONE. [Concomitant]
     Active Substance: PREDNISONE
  3. COMBIGAN [Concomitant]
     Active Substance: BRIMONIDINE TARTRATE\TIMOLOL MALEATE
  4. DUPILUMAB [Suspect]
     Active Substance: DUPILUMAB
     Dosage: 300 MG, QOW
     Route: 058
     Dates: start: 2019
  5. LORATADINE. [Concomitant]
     Active Substance: LORATADINE
  6. LUMIGAN [Concomitant]
     Active Substance: BIMATOPROST
  7. DUPILUMAB [Suspect]
     Active Substance: DUPILUMAB
     Indication: DERMATITIS ATOPIC
     Dosage: 600 MG, 1X
     Route: 058
     Dates: start: 20190405, end: 20190405
  8. VITAMINS NOS [Concomitant]
     Active Substance: VITAMINS
  9. TRIAMCINOLONE ACETONIDE. [Concomitant]
     Active Substance: TRIAMCINOLONE ACETONIDE

REACTIONS (5)
  - Ocular hyperaemia [Unknown]
  - Lacrimation increased [Unknown]
  - Eye pruritus [Not Recovered/Not Resolved]
  - Product dose omission [Unknown]
  - Device issue [Unknown]

NARRATIVE: CASE EVENT DATE: 20190405
